FAERS Safety Report 11531120 (Version 1)
Quarter: 2015Q3

REPORT INFORMATION
  Report Type: Spontaneous
  Country: US (occurrence: US)
  Receive Date: 20150903
  Receipt Date: 20150903
  Transmission Date: 20151125
  Serious: No
  Sender: FDA-Public Use
  Company Number: US-ELI_LILLY_AND_COMPANY-US201305009601

PATIENT
  Sex: Male
  Weight: 86.17 kg

DRUGS (4)
  1. CYMBALTA [Suspect]
     Active Substance: DULOXETINE HYDROCHLORIDE
  2. NEURONTIN [Concomitant]
     Active Substance: GABAPENTIN
     Indication: NERVE INJURY
     Dosage: 50 MG, BID
  3. NEURONTIN [Concomitant]
     Active Substance: GABAPENTIN
     Dosage: 100 MG, BID
  4. NEURONTIN [Concomitant]
     Active Substance: GABAPENTIN
     Dosage: 150 MG, BID

REACTIONS (2)
  - Depression [Recovered/Resolved]
  - Skin lesion [Recovered/Resolved]
